FAERS Safety Report 7653231-1 (Version None)
Quarter: 2011Q3

REPORT INFORMATION
  Report Type: 
  Country: None (occurrence: None)
  Receive Date: 20110802
  Receipt Date: 20110802
  Transmission Date: 20111222
  Serious: No
  Sender: FDA-Public Use
  Company Number: None

PATIENT
  Sex: Male
  Weight: 80.7403 kg

DRUGS (1)
  1. ASPIRIN [Suspect]
     Indication: HEADACHE
     Dosage: 650MG ONCE ORAL
     Route: 048
     Dates: start: 20110711

REACTIONS (6)
  - PALPITATIONS [None]
  - MALAISE [None]
  - VOMITING [None]
  - HEADACHE [None]
  - CONDITION AGGRAVATED [None]
  - DIZZINESS [None]
